FAERS Safety Report 10066414 (Version 2)
Quarter: 2015Q2

REPORT INFORMATION
  Report Type: Spontaneous
  Country: US (occurrence: US)
  Receive Date: 20140408
  Receipt Date: 20150409
  Transmission Date: 20150821
  Serious: Yes (Death, Life-Threatening, Hospitalization, Other)
  Sender: FDA-Public Use
  Company Number: US-MERCK-1404USA004131

PATIENT
  Sex: Female
  Weight: 99.77 kg

DRUGS (4)
  1. JANUVIA [Suspect]
     Active Substance: SITAGLIPTIN PHOSPHATE
     Dosage: 100 MG, 1/2 TABLET QD
     Route: 048
     Dates: start: 20110203, end: 20110714
  2. BYETTA [Suspect]
     Active Substance: EXENATIDE
  3. JANUVIA [Suspect]
     Active Substance: SITAGLIPTIN PHOSPHATE
     Dosage: 100 MG, QD
     Route: 048
     Dates: start: 20110713, end: 20120509
  4. JANUVIA [Suspect]
     Active Substance: SITAGLIPTIN PHOSPHATE
     Indication: TYPE 2 DIABETES MELLITUS
     Dosage: 100 MG, QD
     Route: 048
     Dates: start: 20091214, end: 20110117

REACTIONS (32)
  - Pancreatic carcinoma metastatic [Fatal]
  - Fatigue [Unknown]
  - Dyspepsia [Unknown]
  - Musculoskeletal chest pain [Unknown]
  - Musculoskeletal pain [Unknown]
  - Back pain [Unknown]
  - Metastatic neoplasm [Unknown]
  - Balance disorder [Unknown]
  - Metastases to liver [Unknown]
  - Cholecystitis acute [Unknown]
  - Haemoptysis [Unknown]
  - Muscular weakness [Unknown]
  - Night sweats [Unknown]
  - Musculoskeletal stiffness [Unknown]
  - Anxiety [Unknown]
  - Paraesthesia [Unknown]
  - Bronchitis [Unknown]
  - Essential hypertension [Unknown]
  - Metastases to lung [Unknown]
  - Wrong technique in drug usage process [Unknown]
  - Atelectasis [Unknown]
  - Arthralgia [Unknown]
  - Muscle spasms [Unknown]
  - Hiatus hernia [Unknown]
  - Myocardial infarction [Unknown]
  - Asthenia [Unknown]
  - Ascites [Unknown]
  - Ileus [Unknown]
  - Small intestinal obstruction [Unknown]
  - Pulmonary embolism [Unknown]
  - Dyspnoea [Unknown]
  - Spinal osteoarthritis [Unknown]

NARRATIVE: CASE EVENT DATE: 2009
